FAERS Safety Report 9810769 (Version 4)
Quarter: 2015Q3

REPORT INFORMATION
  Report Type: Spontaneous
  Country: US (occurrence: US)
  Receive Date: 20140110
  Receipt Date: 20150804
  Transmission Date: 20151125
  Serious: Yes (Hospitalization)
  Sender: FDA-Public Use
  Company Number: US-SANOFI-AVENTIS-2013SA001246

PATIENT
  Age: 54 Year
  Sex: Male
  Weight: 77 kg

DRUGS (26)
  1. VITAMIN D [Concomitant]
     Active Substance: CHOLECALCIFEROL
  2. KWIKPEN [Concomitant]
  3. TOPROL XL [Concomitant]
     Active Substance: METOPROLOL SUCCINATE
     Indication: HYPERTENSION
     Dates: start: 201001
  4. ZOCOR [Concomitant]
     Active Substance: SIMVASTATIN
     Indication: CARDIAC DISORDER
     Dates: start: 201001
  5. AMLODIPINE [Concomitant]
     Active Substance: AMLODIPINE BESYLATE
     Route: 048
  6. RAMIPRIL. [Concomitant]
     Active Substance: RAMIPRIL
  7. NITRO [Concomitant]
     Active Substance: NITROGLYCERIN
  8. HUMALOG KWIKPEN [Concomitant]
     Active Substance: INSULIN LISPRO
     Indication: DIABETES MELLITUS
     Dosage: DOSE:10 UNIT(S)
  9. ZESTRIL [Concomitant]
     Active Substance: LISINOPRIL
     Dates: start: 201001
  10. ASPIRIN. [Concomitant]
     Active Substance: ASPIRIN
     Indication: CARDIAC DISORDER
  11. SENNA [Concomitant]
     Active Substance: SENNA LEAF\SENNOSIDES\SENNOSIDES A AND B
     Route: 048
  12. NORVASC [Concomitant]
     Active Substance: AMLODIPINE BESYLATE
  13. KEPPRA [Concomitant]
     Active Substance: LEVETIRACETAM
     Indication: SEIZURE
     Route: 048
     Dates: start: 201001
  14. PEPCID [Concomitant]
     Active Substance: FAMOTIDINE
     Indication: GASTRIC DISORDER
     Route: 048
  15. PLAVIX [Suspect]
     Active Substance: CLOPIDOGREL BISULFATE
     Indication: ACUTE CORONARY SYNDROME
     Route: 048
     Dates: start: 20091110, end: 20091210
  16. ATENOLOL. [Concomitant]
     Active Substance: ATENOLOL
     Route: 048
  17. SIMVASTATIN. [Concomitant]
     Active Substance: SIMVASTATIN
     Route: 048
  18. LASIX [Concomitant]
     Active Substance: FUROSEMIDE
  19. ARANESP [Concomitant]
     Active Substance: DARBEPOETIN ALFA
     Indication: CHRONIC KIDNEY DISEASE
  20. PLAVIX [Suspect]
     Active Substance: CLOPIDOGREL BISULFATE
     Indication: PROPHYLAXIS
     Route: 048
     Dates: start: 20091110, end: 20091210
  21. LANTUS [Concomitant]
     Active Substance: INSULIN GLARGINE
     Indication: DIABETES MELLITUS
  22. ZEMPLAR [Concomitant]
     Active Substance: PARICALCITOL
     Route: 048
  23. METOPROLOL SUCCINATE. [Concomitant]
     Active Substance: METOPROLOL SUCCINATE
     Dosage: 100 MG 1 1/2 TABLET
     Route: 048
  24. COLACE [Concomitant]
     Active Substance: DOCUSATE SODIUM
  25. NORVASC [Concomitant]
     Active Substance: AMLODIPINE BESYLATE
  26. NOVOLOG [Concomitant]
     Active Substance: INSULIN ASPART
     Dosage: 20 AND 16 UNITS

REACTIONS (5)
  - Confusional state [Recovered/Resolved]
  - Speech disorder [Recovered/Resolved]
  - Mental impairment [Recovered/Resolved]
  - Cerebral haemorrhage [Recovered/Resolved]
  - Asthenia [Recovered/Resolved]

NARRATIVE: CASE EVENT DATE: 20100111
